FAERS Safety Report 4317810-1 (Version None)
Quarter: 2004Q1

REPORT INFORMATION
  Report Type: 
  Country: None (occurrence: None)
  Receive Date: 20040316
  Receipt Date: 20040203
  Transmission Date: 20041129
  Serious: Yes (Hospitalization)
  Sender: FDA-Public Use
  Company Number: US-ROCHE-358147

PATIENT
  Sex: Male

DRUGS (2)
  1. PEGASYS [Suspect]
     Indication: DRUG USE FOR UNKNOWN INDICATION
     Route: 058
     Dates: start: 20030615
  2. COPEGUS [Suspect]
     Route: 048
     Dates: start: 20030615

REACTIONS (12)
  - ARTHRALGIA [None]
  - BONE PAIN [None]
  - DEHYDRATION [None]
  - ERUCTATION [None]
  - GOUT [None]
  - HEART RATE INCREASED [None]
  - INSOMNIA [None]
  - MUSCULOSKELETAL DISCOMFORT [None]
  - OESOPHAGEAL PAIN [None]
  - ORAL PAIN [None]
  - PAIN [None]
  - THYROID DISORDER [None]
